FAERS Safety Report 16053189 (Version 4)
Quarter: 2020Q2

REPORT INFORMATION
  Report Type: Spontaneous
  Country: US (occurrence: US)
  Receive Date: 20190308
  Receipt Date: 20200514
  Transmission Date: 20200713
  Serious: Yes (Hospitalization)
  Sender: FDA-Public Use
  Company Number: US-VIFOR (INTERNATIONAL) INC.-VIT-2019-01978

PATIENT
  Age: 60 Year
  Sex: Female

DRUGS (13)
  1. ACETAMINOPHEN. [Concomitant]
     Active Substance: ACETAMINOPHEN
  2. NORVASC [Concomitant]
     Active Substance: AMLODIPINE BESYLATE
  3. ADVIL [Concomitant]
     Active Substance: IBUPROFEN
  4. COREG [Concomitant]
     Active Substance: CARVEDILOL
  5. PRAVACHOL [Concomitant]
     Active Substance: PRAVASTATIN SODIUM
  6. BUDESONIDE. [Concomitant]
     Active Substance: BUDESONIDE
  7. LASIX [Concomitant]
     Active Substance: FUROSEMIDE
  8. ZITHROMAX [Concomitant]
     Active Substance: AZITHROMYCIN DIHYDRATE
  9. VELTASSA [Suspect]
     Active Substance: PATIROMER
     Route: 048
     Dates: start: 20190630
  10. HUMALOG [Concomitant]
     Active Substance: INSULIN LISPRO
  11. VELTASSA [Suspect]
     Active Substance: PATIROMER
     Indication: HYPERKALAEMIA
     Route: 048
     Dates: start: 20180630
  12. FLONASE SENSIMIST ALLERGY RELIEF [Concomitant]
     Active Substance: FLUTICASONE FUROATE
  13. COZAAR [Concomitant]
     Active Substance: LOSARTAN POTASSIUM

REACTIONS (10)
  - Cystitis [Unknown]
  - Anaemia [Unknown]
  - Sepsis [Unknown]
  - Hallucination [Unknown]
  - Pneumonia [Unknown]
  - Clostridium difficile infection [Unknown]
  - Fall [Unknown]
  - Pulmonary oedema [Recovered/Resolved]
  - Loss of consciousness [Unknown]
  - Chronic obstructive pulmonary disease [Unknown]

NARRATIVE: CASE EVENT DATE: 201902
